FAERS Safety Report 11463620 (Version 6)
Quarter: 2015Q4

REPORT INFORMATION
  Report Type: Spontaneous
  Country: US (occurrence: US)
  Receive Date: 20150831
  Receipt Date: 20151110
  Transmission Date: 20160304
  Serious: No
  Sender: FDA-Public Use
  Company Number: US-ELI_LILLY_AND_COMPANY-US201002001451

PATIENT
  Age: 63 Year
  Sex: Female

DRUGS (5)
  1. CYMBALTA [Suspect]
     Active Substance: DULOXETINE HYDROCHLORIDE
     Indication: NERVOUS SYSTEM DISORDER
     Dosage: UNK
     Dates: start: 2010
  2. FORTEO [Suspect]
     Active Substance: TERIPARATIDE
     Indication: OSTEOPOROSIS
     Dosage: 20 UG, QD
     Dates: start: 200911
  3. LASIX [Concomitant]
     Active Substance: FUROSEMIDE
     Indication: CARDIOVASCULAR DISORDER
  4. POTASSIUM [Concomitant]
     Active Substance: POTASSIUM
  5. MOBIC [Concomitant]
     Active Substance: MELOXICAM
     Indication: INFLAMMATION

REACTIONS (15)
  - Back disorder [Unknown]
  - Limb discomfort [Unknown]
  - Fall [Recovered/Resolved]
  - Headache [Unknown]
  - Injection site haemorrhage [Recovered/Resolved]
  - Injection site pain [Recovered/Resolved]
  - Musculoskeletal disorder [Unknown]
  - Stress [Unknown]
  - Anxiety [Unknown]
  - Drug dose omission [Recovered/Resolved]
  - Injection site bruising [Recovered/Resolved]
  - Muscle spasms [Unknown]
  - Gastric ulcer [Unknown]
  - Sinus disorder [Unknown]
  - Off label use [Unknown]

NARRATIVE: CASE EVENT DATE: 201109
